FAERS Safety Report 15460043 (Version 1)
Quarter: 2018Q4

REPORT INFORMATION
  Report Type: Spontaneous
  Country: SE (occurrence: SE)
  Receive Date: 20181003
  Receipt Date: 20181003
  Transmission Date: 20190204
  Serious: Yes (Death)
  Sender: FDA-Public Use
  Company Number: SE-INFO-000695

PATIENT

DRUGS (2)
  1. NORTRIPTYLINE [Interacting]
     Active Substance: NORTRIPTYLINE
     Route: 065
  2. FLUCONAZOLE. [Suspect]
     Active Substance: FLUCONAZOLE
     Indication: ORAL FUNGAL INFECTION
     Dosage: DOUBLE DOSE
     Route: 065

REACTIONS (4)
  - Cardiac arrest [Fatal]
  - Medication error [Fatal]
  - Toxicity to various agents [Fatal]
  - Drug interaction [Fatal]
